FAERS Safety Report 6572846-5 (Version None)
Quarter: 2010Q1

REPORT INFORMATION
  Report Type: 
  Country: None (occurrence: None)
  Receive Date: 20100205
  Receipt Date: 20100125
  Transmission Date: 20100710
  Serious: No
  Sender: FDA-Public Use
  Company Number: JP-MEDIMMUNE-MEDI-0010058

PATIENT
  Sex: Female
  Weight: 7.3 kg

DRUGS (2)
  1. SYNAGIS [Suspect]
     Route: 030
     Dates: start: 20091216, end: 20091216
  2. BIFIDOBACTERIUM [Suspect]
     Route: 048
     Dates: start: 20091216, end: 20091221

REACTIONS (1)
  - SOMNOLENCE [None]
